FAERS Safety Report 6361834-X (Version None)
Quarter: 2009Q3

REPORT INFORMATION
  Report Type: 
  Country: None (occurrence: None)
  Receive Date: 20090821
  Receipt Date: 20090715
  Transmission Date: 20100115
  Serious: No
  Sender: FDA-Public Use
  Company Number: 8049069

PATIENT
  Age: 39 Year
  Sex: Female
  Weight: 77.2 kg

DRUGS (3)
  1. CIMZIA [Suspect]
     Indication: CROHN'S DISEASE
     Dosage: 400 MG SC
     Route: 058
     Dates: start: 20090520
  2. WELLBUTRIN [Concomitant]
  3. MERCAPTOPURINE [Concomitant]

REACTIONS (5)
  - APHTHOUS STOMATITIS [None]
  - FATIGUE [None]
  - FREQUENT BOWEL MOVEMENTS [None]
  - HAIR DISORDER [None]
  - PAIN [None]
